FAERS Safety Report 6632135-7 (Version None)
Quarter: 2010Q1

REPORT INFORMATION
  Report Type: 
  Country: None (occurrence: None)
  Receive Date: 20100312
  Receipt Date: 20091113
  Transmission Date: 20100710
  Serious: No
  Sender: FDA-Public Use
  Company Number: US-ABBOTT-09P-163-0609172-00

PATIENT
  Sex: Male
  Weight: 98.064 kg

DRUGS (1)
  1. E-MYCIN [Suspect]
     Indication: VIRAL INFECTION
     Dates: start: 19700101, end: 19700101

REACTIONS (1)
  - URTICARIA [None]
